FAERS Safety Report 5277822-0 (Version None)
Quarter: 2007Q1

REPORT INFORMATION
  Report Type: 
  Country: None (occurrence: None)
  Receive Date: 20070327
  Receipt Date: 20070316
  Transmission Date: 20070707
  Serious: Yes (Other)
  Sender: FDA-Public Use
  Company Number: DE-PFIZER INC-2007013138

PATIENT
  Sex: Female
  Weight: 110 kg

DRUGS (2)
  1. MEDROXYPROGESTERONE ACETATE [Suspect]
     Indication: CONTRACEPTION
     Dosage: FREQ:INJECTION EVERY 3 MONTHS
     Route: 030
  2. MEDROXYPROGESTERONE ACETATE [Suspect]
     Dosage: FREQ:LAST INJECTION
     Route: 030
     Dates: start: 20061215, end: 20061215

REACTIONS (6)
  - ABORTION MISSED [None]
  - ABORTION SPONTANEOUS [None]
  - DRUG INEFFECTIVE [None]
  - NECROSIS [None]
  - PREGNANCY [None]
  - UNINTENDED PREGNANCY [None]
